FAERS Safety Report 6874586-1 (Version None)
Quarter: 2010Q3

REPORT INFORMATION
  Report Type: 
  Country: None (occurrence: None)
  Receive Date: 20100722
  Receipt Date: 20100713
  Transmission Date: 20110219
  Serious: Yes (Other)
  Sender: FDA-Public Use
  Company Number: 2010SP039566

PATIENT
  Sex: Female

DRUGS (1)
  1. CERAZETTE (DESOGESTREL / 00754001/ ) [Suspect]
     Indication: PRODUCT USED FOR UNKNOWN INDICATION

REACTIONS (1)
  - GASTRIC ULCER [None]
